FAERS Safety Report 7758340-4 (Version None)
Quarter: 2011Q3

REPORT INFORMATION
  Report Type: 
  Country: None (occurrence: None)
  Receive Date: 20110825
  Receipt Date: 20110722
  Transmission Date: 20111222
  Serious: No
  Sender: FDA-Public Use
  Company Number: 332673

PATIENT
  Age: 47 Year
  Sex: Female

DRUGS (3)
  1. METFORMIN HCL [Concomitant]
  2. VICTOZA [Suspect]
     Indication: GLUCOSE TOLERANCE IMPAIRED
     Dosage: 0.6 MG, QD, SUBCUTANEOUS
     Route: 058
  3. VICTOZA [Suspect]
     Indication: INSULIN RESISTANT DIABETES
     Dosage: 0.6 MG, QD, SUBCUTANEOUS
     Route: 058

REACTIONS (1)
  - NAUSEA [None]
